FAERS Safety Report 6425971-3 (Version None)
Quarter: 2009Q4

REPORT INFORMATION
  Report Type: 
  Country: None (occurrence: None)
  Receive Date: 20091103
  Receipt Date: 20091103
  Transmission Date: 20100525
  Serious: No
  Sender: FDA-Public Use
  Company Number: None

PATIENT
  Age: 83 Year

DRUGS (1)
  1. PRAZOSIN HYDROCHLORIDE [Suspect]
     Indication: HYPERTENSION
     Dosage: 5 MG ONCE PO
     Route: 048
     Dates: start: 20081026

REACTIONS (2)
  - HYPOTENSION [None]
  - RESPIRATORY FAILURE [None]
